FAERS Safety Report 5188771-0 (Version None)
Quarter: 2006Q4

REPORT INFORMATION
  Report Type: 
  Country: None (occurrence: None)
  Receive Date: 20061214
  Receipt Date: 20061201
  Transmission Date: 20070319
  Serious: Yes (Death)
  Sender: FDA-Public Use
  Company Number: KADN20060049

PATIENT
  Age: 37 Year
  Sex: Male

DRUGS (7)
  1. KADIAN [Suspect]
     Indication: BACK PAIN
     Dosage: 100MG BID PO
     Route: 048
     Dates: start: 20040922, end: 20041101
  2. KADIAN [Suspect]
     Indication: BACK PAIN
     Dosage: 60 MG BID PO
     Route: 048
     Dates: start: 20040823, end: 20040921
  3. KADIAN [Suspect]
     Indication: BACK PAIN
     Dosage: 30 MG BID PO
     Route: 048
     Dates: start: 20040805, end: 20040822
  4. LORTAB 10/500 MG UCB [Suspect]
     Indication: BREAKTHROUGH PAIN
     Dosage: 1 TAB Q4-6H PO
     Route: 048
     Dates: start: 20040805, end: 20041101
  5. ZYRTEC [Concomitant]
  6. LIBRIUM [Concomitant]
  7. TYLENOL SINUS TABLETS [Concomitant]

REACTIONS (14)
  - ACCIDENTAL DEATH [None]
  - ALCOHOL POISONING [None]
  - ANXIETY [None]
  - COMPLETED SUICIDE [None]
  - CONSTIPATION [None]
  - DEPRESSION [None]
  - DRUG INTOLERANCE [None]
  - HOMICIDE [None]
  - INSOMNIA [None]
  - LOSS OF CONSCIOUSNESS [None]
  - OVERDOSE [None]
  - PAIN [None]
  - RESPIRATORY DEPRESSION [None]
  - ROAD TRAFFIC ACCIDENT [None]
